FAERS Safety Report 7637076-4 (Version None)
Quarter: 2011Q3

REPORT INFORMATION
  Report Type: 
  Country: None (occurrence: None)
  Receive Date: 20110722
  Receipt Date: 20110722
  Transmission Date: 20111222
  Serious: Yes (Other)
  Sender: FDA-Public Use
  Company Number: None

PATIENT
  Age: 73 Year
  Sex: Female
  Weight: 66.6788 kg

DRUGS (2)
  1. IMIQUIMOD [Suspect]
     Indication: SKIN CANCER
     Dosage: 1 PACKET 5 NIGHTS/WEEK SKIN
     Route: 062
     Dates: start: 20110628
  2. IMIQUIMOD [Suspect]
     Indication: SKIN CANCER
     Dosage: 1 PACKET 5 NIGHTS/WEEK SKIN
     Route: 062
     Dates: start: 20110627

REACTIONS (5)
  - PYREXIA [None]
  - ABDOMINAL PAIN [None]
  - HYPERTENSION [None]
  - DIARRHOEA [None]
  - HEART RATE INCREASED [None]
